FAERS Safety Report 17049968 (Version 2)
Quarter: 2020Q2

REPORT INFORMATION
  Report Type: Report from Study
  Country: US (occurrence: US)
  Receive Date: 20191119
  Receipt Date: 20200429
  Transmission Date: 20200713
  Serious: Yes (Other)
  Sender: FDA-Public Use
  Company Number: US-SHIRE-US201939348

PATIENT
  Age: 25 Year
  Sex: Male

DRUGS (3)
  1. ELAPRASE [Suspect]
     Active Substance: IDURSULFASE
     Dosage: 55 MILLIGRAM (6MG/3ML)
     Route: 042
     Dates: start: 20160406
  2. ELAPRASE [Suspect]
     Active Substance: IDURSULFASE
     Dosage: 10 DOSAGE FORM, 1X/WEEK
     Route: 042
     Dates: start: 20061019
  3. ELAPRASE [Suspect]
     Active Substance: IDURSULFASE
     Indication: MUCOPOLYSACCHARIDOSIS II
     Dosage: 7 DOSAGE FORM, 1X/WEEK
     Route: 042
     Dates: start: 20061019

REACTIONS (3)
  - Nasopharyngitis [Recovered/Resolved]
  - Migraine with aura [Unknown]
  - Peripheral swelling [Recovered/Resolved]

NARRATIVE: CASE EVENT DATE: 20191114
